FAERS Safety Report 20988597 (Version 1)
Quarter: 2022Q2

REPORT INFORMATION
  Report Type: Spontaneous
  Country: PL (occurrence: PL)
  Receive Date: 20220621
  Receipt Date: 20220621
  Transmission Date: 20220720
  Serious: Yes (Other)
  Sender: FDA-Public Use
  Company Number: PL-009507513-2205POL008582

PATIENT
  Age: 50 Year
  Sex: Female

DRUGS (3)
  1. CARBOPLATIN [Suspect]
     Active Substance: CARBOPLATIN
     Indication: Lung neoplasm malignant
     Dosage: AREA UNDER THE CURVE (AUC) 6
  2. PEMETREXED [Suspect]
     Active Substance: PEMETREXED
     Indication: Lung neoplasm malignant
     Dosage: 500 MILLIGRAM/SQ. METER
  3. PEMBROLIZUMAB [Suspect]
     Active Substance: PEMBROLIZUMAB
     Indication: Lung neoplasm malignant
     Dosage: 200 MILLIGRAM

REACTIONS (14)
  - Malignant neoplasm progression [Unknown]
  - Cough [Unknown]
  - Fatigue [Unknown]
  - Fatigue [Unknown]
  - Weight decreased [Unknown]
  - Myalgia [Not Recovered/Not Resolved]
  - Granulocytopenia [Unknown]
  - Dermatitis [Recovered/Resolved]
  - Dyspnoea at rest [Unknown]
  - Anaemia [Unknown]
  - Alopecia [Unknown]
  - Diarrhoea [Not Recovered/Not Resolved]
  - Nausea [Unknown]
  - Vomiting [Unknown]
